FAERS Safety Report 9055004 (Version 4)
Quarter: 2013Q4

REPORT INFORMATION
  Report Type: Spontaneous
  Country: US (occurrence: US)
  Receive Date: 20130206
  Receipt Date: 20131107
  Transmission Date: 20140711
  Serious: Yes (Hospitalization, Other)
  Sender: FDA-Public Use
  Company Number: US-009507513-1302USA001547

PATIENT
  Sex: Female
  Weight: 52.15 kg

DRUGS (4)
  1. FOSAMAX [Suspect]
     Indication: OSTEOPOROSIS PROPHYLAXIS
     Dosage: 70 MG, UNK
     Route: 048
     Dates: end: 2005
  2. ACTONEL [Suspect]
     Indication: OSTEOPOROSIS PROPHYLAXIS
     Dosage: UNK
     Dates: start: 200511, end: 201102
  3. BONIVA [Suspect]
     Indication: OSTEOPOROSIS PROPHYLAXIS
     Dosage: 150 MG, UNK
     Route: 048
     Dates: start: 2008, end: 201102
  4. HORMONES (UNSPECIFIED) [Concomitant]
     Dosage: UNK
     Dates: start: 1984, end: 2001

REACTIONS (36)
  - Intramedullary rod insertion [Unknown]
  - Intramedullary rod insertion [Unknown]
  - Surgery [Unknown]
  - Femur fracture [Unknown]
  - Femur fracture [Unknown]
  - Insomnia [Unknown]
  - Fall [Unknown]
  - Leukocytosis [Unknown]
  - Hyperchloraemia [Unknown]
  - Hypokalaemia [Unknown]
  - Arthritis [Unknown]
  - Joint crepitation [Unknown]
  - Dyspnoea exertional [Unknown]
  - Anaemia postoperative [Recovering/Resolving]
  - Gait disturbance [Recovered/Resolved]
  - Ataxia [Unknown]
  - Upper limb fracture [Unknown]
  - Fall [Unknown]
  - Osteoporosis [Unknown]
  - Depression [Unknown]
  - Anxiety [Unknown]
  - Insomnia [Unknown]
  - Negative thoughts [Unknown]
  - Depressed mood [Unknown]
  - Pelvic pain [Unknown]
  - Spinal osteoarthritis [Unknown]
  - Leukocytosis [Unknown]
  - Escherichia test positive [Unknown]
  - Macular degeneration [Unknown]
  - Prealbumin decreased [Recovering/Resolving]
  - Osteoarthritis [Unknown]
  - Pain in extremity [Unknown]
  - Arthralgia [Unknown]
  - Constipation [Recovered/Resolved]
  - Back pain [Not Recovered/Not Resolved]
  - Gastrooesophageal reflux disease [Unknown]
